FAERS Safety Report 6667988-X (Version None)
Quarter: 2010Q2

REPORT INFORMATION
  Report Type: 
  Country: None (occurrence: None)
  Receive Date: 20100405
  Receipt Date: 20100324
  Transmission Date: 20101027
  Serious: Yes (Other)
  Sender: FDA-Public Use
  Company Number: PHHY2008JP33254

PATIENT
  Age: 38 Year
  Sex: Female

DRUGS (9)
  1. NEORAL [Suspect]
     Indication: PSORIASIS
     Dosage: 100 MG/DAY
     Route: 048
  2. NEORAL [Suspect]
     Indication: NEPHROTIC SYNDROME
     Dosage: 200 MG/DAY
     Route: 048
  3. FANSIDAR [Suspect]
     Dosage: 100 MG
     Route: 048
  4. FAMOTIDINE [Suspect]
     Dosage: 20 MG/DAY
     Route: 048
  5. FOSAMAX [Suspect]
     Dosage: 35 MG/WEEK
     Route: 048
  6. ALLOPURINOL [Concomitant]
     Dosage: 100 MG
     Route: 048
  7. PREDNISOLONE [Concomitant]
     Indication: THROMBOCYTOPENIC PURPURA
     Dosage: 20 MG
  8. PREDNISOLONE [Concomitant]
     Indication: HAEMOLYTIC ANAEMIA
     Dosage: 50 MG
  9. ACYCLOVIR SODIUM [Concomitant]
     Indication: HERPES ZOSTER

REACTIONS (7)
  - APLASTIC ANAEMIA [None]
  - CEREBRAL TOXOPLASMOSIS [None]
  - CYTOMEGALOVIRUS ENTEROCOLITIS [None]
  - HAEMOLYTIC ANAEMIA [None]
  - HERPES ZOSTER [None]
  - MENINGITIS CRYPTOCOCCAL [None]
  - PNEUMOCYSTIS JIROVECI PNEUMONIA [None]
